FAERS Safety Report 6300231-X (Version None)
Quarter: 2009Q3

REPORT INFORMATION
  Report Type: 
  Country: None (occurrence: None)
  Receive Date: 20090803
  Receipt Date: 20090720
  Transmission Date: 20100115
  Serious: No
  Sender: FDA-Public Use
  Company Number: ADR9872009(ARROW LOG NO. 2007AG0421

PATIENT
  Age: 60 Year
  Sex: Female

DRUGS (5)
  1. AMLODIPINE BESYLATE [Suspect]
     Indication: HYPERTENSION
     Dosage: 5 MG, ORAL
     Route: 048
     Dates: start: 20050520, end: 20070502
  2. BENDROFLUAZIDE 2.5MG [Concomitant]
  3. DIHYDROCODEINE BITARTRATE INJ [Concomitant]
  4. OMEPRAZOLE [Concomitant]
  5. ACETAMINOPHEN [Concomitant]

REACTIONS (2)
  - DRY EYE [None]
  - EYE IRRITATION [None]
